FAERS Safety Report 5322017-5 (Version None)
Quarter: 2007Q2

REPORT INFORMATION
  Report Type: 
  Country: None (occurrence: None)
  Receive Date: 20070508
  Receipt Date: 20070508
  Transmission Date: 20071010
  Serious: Yes (Hospitalization)
  Sender: FDA-Public Use
  Company Number: None

PATIENT
  Age: 38 Year
  Sex: Female
  Weight: 68.0396 kg

DRUGS (1)
  1. CIPRO [Suspect]
     Indication: URINARY TRACT INFECTION
     Dosage: 250 MG.  2X DAILY  PO
     Route: 048
     Dates: start: 20061110, end: 20061112

REACTIONS (6)
  - CARDIAC FLUTTER [None]
  - DISTURBANCE IN ATTENTION [None]
  - FORMICATION [None]
  - MUSCLE SPASMS [None]
  - PARAESTHESIA [None]
  - PRURITUS [None]
